FAERS Safety Report 18003166 (Version 1)
Quarter: 2020Q3

REPORT INFORMATION
  Report Type: Spontaneous
  Country: RO (occurrence: RO)
  Receive Date: 20200710
  Receipt Date: 20200710
  Transmission Date: 20201103
  Serious: Yes (Other)
  Sender: FDA-Public Use
  Company Number: RO-ROCHE-2638070

PATIENT
  Age: 64 Year
  Sex: Male

DRUGS (3)
  1. CISPLATIN. [Concomitant]
     Active Substance: CISPLATIN
     Indication: TRANSITIONAL CELL CARCINOMA
     Route: 065
     Dates: start: 2018
  2. TECENTRIQ [Suspect]
     Active Substance: ATEZOLIZUMAB
     Indication: TRANSITIONAL CELL CARCINOMA
     Route: 041
     Dates: start: 201906, end: 202007
  3. GEMCITABINE. [Concomitant]
     Active Substance: GEMCITABINE
     Indication: TRANSITIONAL CELL CARCINOMA
     Route: 065
     Dates: start: 2018

REACTIONS (4)
  - Arthralgia [Unknown]
  - Tenosynovitis [Unknown]
  - Urinary tract infection pseudomonal [Recovered/Resolved]
  - Rheumatic fever [Unknown]
